FAERS Safety Report 6583142-4 (Version None)
Quarter: 2010Q1

REPORT INFORMATION
  Report Type: 
  Country: None (occurrence: None)
  Receive Date: 20100204
  Receipt Date: 20100120
  Transmission Date: 20100710
  Serious: Yes (Death)
  Sender: FDA-Public Use
  Company Number: 2010000271

PATIENT
  Age: 57 Year
  Sex: Male

DRUGS (13)
  1. ERLOTINIB HYDROCHLORIDE [Suspect]
     Indication: LUNG ADENOCARCINOMA
     Dosage: (150 MG, QD), ORAL; (100 MG, QD), ORAL; (100 MG, QOD), ORAL; (100 MG, EVERY TWO DAYS), ORAL
     Route: 048
     Dates: start: 20080225, end: 20080228
  2. ERLOTINIB HYDROCHLORIDE [Suspect]
     Indication: LUNG ADENOCARCINOMA
     Dosage: (150 MG, QD), ORAL; (100 MG, QD), ORAL; (100 MG, QOD), ORAL; (100 MG, EVERY TWO DAYS), ORAL
     Route: 048
     Dates: start: 20080229, end: 20080303
  3. ERLOTINIB HYDROCHLORIDE [Suspect]
     Indication: LUNG ADENOCARCINOMA
     Dosage: (150 MG, QD), ORAL; (100 MG, QD), ORAL; (100 MG, QOD), ORAL; (100 MG, EVERY TWO DAYS), ORAL
     Route: 048
     Dates: start: 20080304, end: 20080308
  4. ERLOTINIB HYDROCHLORIDE [Suspect]
     Indication: LUNG ADENOCARCINOMA
     Dosage: (150 MG, QD), ORAL; (100 MG, QD), ORAL; (100 MG, QOD), ORAL; (100 MG, EVERY TWO DAYS), ORAL
     Route: 048
     Dates: start: 20080309, end: 20080322
  5. NOVAMIN (PROCHLORPERAZINE) [Concomitant]
  6. PURSENNID (SENNA LEAF) [Concomitant]
  7. ASVERIN (TIPEPIDINE HIBENZATE) [Concomitant]
  8. MUCODYNE (CARBOCISTEINE) [Concomitant]
  9. MOBIC [Concomitant]
  10. MUCOSTA (REBAMIPIDE) [Concomitant]
  11. OXYCONTIN [Concomitant]
  12. RESMIT (MEDAZEPAM) [Concomitant]
  13. TIZANIDINE HCL [Concomitant]

REACTIONS (3)
  - LUNG ADENOCARCINOMA [None]
  - MALIGNANT NEOPLASM PROGRESSION [None]
  - MALIGNANT PLEURAL EFFUSION [None]
